FAERS Safety Report 6106060-4 (Version None)
Quarter: 2009Q1

REPORT INFORMATION
  Report Type: 
  Country: None (occurrence: None)
  Receive Date: 20090227
  Receipt Date: 20080428
  Transmission Date: 20090719
  Serious: Yes (Other)
  Sender: FDA-Public Use
  Company Number: 170841USA

PATIENT
  Age: 75 Year
  Sex: Male

DRUGS (2)
  1. PROPOFOL [Suspect]
     Indication: ANAESTHESIA
     Dosage: INTRAVENOUS (NOT OTHERWISE SPECIFIED)
     Route: 042
     Dates: start: 20080327, end: 20080412
  2. PROPOFOL [Suspect]
     Indication: SEDATION
     Dosage: INTRAVENOUS (NOT OTHERWISE SPECIFIED)
     Route: 042
     Dates: start: 20080327, end: 20080412

REACTIONS (4)
  - AGITATION [None]
  - AMNESIA [None]
  - DYSPNOEA [None]
  - RESPIRATORY DEPRESSION [None]
